FAERS Safety Report 4311269-6 (Version None)
Quarter: 2004Q1

REPORT INFORMATION
  Report Type: 
  Country: None (occurrence: None)
  Receive Date: 20040302
  Receipt Date: 20031106
  Transmission Date: 20041129
  Serious: Yes (Life-Threatening, Hospitalization)
  Sender: FDA-Public Use
  Company Number: BDI-005596

PATIENT
  Age: 50 Year
  Sex: Male

DRUGS (2)
  1. ISOVUE-370 [Suspect]
     Indication: COLITIS
     Dosage: 75 ML ONCE IV
     Dates: start: 20031106, end: 20031106
  2. ISOVUE-370 [Suspect]
     Indication: COMPUTERISED TOMOGRAM
     Dosage: 75 ML ONCE IV
     Dates: start: 20031106, end: 20031106

REACTIONS (1)
  - ANAPHYLACTOID REACTION [None]
